FAERS Safety Report 10015896 (Version 1)
Quarter: 2014Q1

REPORT INFORMATION
  Report Type: Spontaneous
  Country: GB (occurrence: GB)
  Receive Date: 20140317
  Receipt Date: 20140317
  Transmission Date: 20141002
  Serious: Yes (Other)
  Sender: FDA-Public Use
  Company Number: GB-GLAXOSMITHKLINE-B0976909A

PATIENT
  Sex: Male

DRUGS (1)
  1. CLENIL MODULITE [Suspect]
     Indication: ASTHMA
     Route: 065
     Dates: start: 20130710

REACTIONS (5)
  - Glossodynia [Not Recovered/Not Resolved]
  - Burn oesophageal [Not Recovered/Not Resolved]
  - Ageusia [Not Recovered/Not Resolved]
  - Oral candidiasis [Recovered/Resolved]
  - Throat irritation [Not Recovered/Not Resolved]
